FAERS Safety Report 18851411 (Version 2)
Quarter: 2025Q3

REPORT INFORMATION
  Report Type: Report from Study
  Country: HN (occurrence: HN)
  Receive Date: 20210205
  Receipt Date: 20250709
  Transmission Date: 20251021
  Serious: Yes (Hospitalization)
  Sender: NOVARTIS
  Company Number: HN-NOVARTISPH-NVSC2021HN022278

PATIENT
  Age: 71 Year
  Sex: Female

DRUGS (1)
  1. SECUKINUMAB [Suspect]
     Active Substance: SECUKINUMAB
     Indication: Psoriasis
     Dosage: 300 MG, QMO
     Route: 058
     Dates: start: 201905, end: 20201215

REACTIONS (11)
  - Colitis [Unknown]
  - Asthenia [Recovering/Resolving]
  - Abdominal pain [Recovering/Resolving]
  - Weight decreased [Recovering/Resolving]
  - Nausea [Recovering/Resolving]
  - Diarrhoea [Unknown]
  - Eating disorder [Unknown]
  - Ocular hyperaemia [Unknown]
  - Eye pruritus [Unknown]
  - Eye irritation [Unknown]
  - Cough [Unknown]

NARRATIVE: CASE EVENT DATE: 20201220
